FAERS Safety Report 7058449-7 (Version None)
Quarter: 2010Q4

REPORT INFORMATION
  Report Type: 
  Country: None (occurrence: None)
  Receive Date: 20101022
  Receipt Date: 20101008
  Transmission Date: 20110411
  Serious: Yes (Other)
  Sender: FDA-Public Use
  Company Number: FR-GENZYME-CLOF-1001259

PATIENT
  Sex: Male
  Weight: 88 kg

DRUGS (6)
  1. EVOLTRA [Suspect]
     Indication: ACUTE MYELOID LEUKAEMIA
     Dosage: 60 MG, QDX5
     Route: 042
     Dates: start: 20100728, end: 20100801
  2. CYTARABINE [Suspect]
     Indication: ACUTE MYELOID LEUKAEMIA
     Dosage: 2000 MG, QDX5
     Route: 042
     Dates: start: 20100727, end: 20100731
  3. FILGRASTIM [Concomitant]
     Indication: ACUTE MYELOID LEUKAEMIA
     Dosage: 60 MG, QDX5
     Route: 042
     Dates: start: 20100728, end: 20100801
  4. LEVOFLOXACIN [Concomitant]
     Indication: PRODUCT USED FOR UNKNOWN INDICATION
     Dosage: 500 MG, QD
  5. POSACONAZOLE [Concomitant]
     Indication: PRODUCT USED FOR UNKNOWN INDICATION
     Dosage: 300 MG, QD
  6. AMIKIN [Concomitant]
     Indication: PRODUCT USED FOR UNKNOWN INDICATION
     Dosage: UNK
     Dates: start: 20100817, end: 20100821

REACTIONS (3)
  - BONE MARROW FAILURE [None]
  - PYREXIA [None]
  - STAPHYLOCOCCAL INFECTION [None]
